FAERS Safety Report 8616442-4 (Version None)
Quarter: 2012Q3

REPORT INFORMATION
  Report Type: 
  Country: None (occurrence: None)
  Receive Date: 20120823
  Receipt Date: 20120814
  Transmission Date: 20120928
  Serious: Yes (Hospitalization)
  Sender: FDA-Public Use
  Company Number: US-ASTRAZENECA-2012SE11776

PATIENT
  Age: 71 Year
  Sex: Female

DRUGS (1)
  1. NEXIUM [Suspect]
     Route: 048

REACTIONS (8)
  - GASTRIC HAEMORRHAGE [None]
  - BARRETT'S OESOPHAGUS [None]
  - PNEUMONIA [None]
  - DRUG DOSE OMISSION [None]
  - ASPIRATION BRONCHIAL [None]
  - HIATUS HERNIA [None]
  - MALAISE [None]
  - GASTROOESOPHAGEAL REFLUX DISEASE [None]
